FAERS Safety Report 22640652 (Version 2)
Quarter: 2023Q2

REPORT INFORMATION
  Report Type: Spontaneous
  Country: BR (occurrence: BR)
  Receive Date: 20230626
  Receipt Date: 20230628
  Transmission Date: 20230721
  Serious: Yes (Disabling, Other)
  Sender: FDA-Public Use
  Company Number: BR-MYLANLABS-2023M1065681

PATIENT
  Age: 43 Year
  Sex: Female

DRUGS (1)
  1. DYMISTA [Suspect]
     Active Substance: AZELASTINE HYDROCHLORIDE\FLUTICASONE PROPIONATE
     Indication: Hypersensitivity
     Dosage: 1 DOSAGE FORM, TID
     Route: 045
     Dates: start: 202304

REACTIONS (18)
  - Psoriatic arthropathy [Unknown]
  - Depression [Unknown]
  - Humoral immune defect [Unknown]
  - Lumbar hernia [Unknown]
  - Thrombosis [Unknown]
  - Diverticulitis [Unknown]
  - Dysphoria [Unknown]
  - Psoriasis [Unknown]
  - Fibromyalgia [Unknown]
  - Autism spectrum disorder [Unknown]
  - Chronic fatigue syndrome [Unknown]
  - Scoliosis [Unknown]
  - Obesity [Unknown]
  - Bruxism [Unknown]
  - Hypertension [Unknown]
  - Urinary incontinence [Unknown]
  - Gastritis [Unknown]
  - Wrong schedule [Not Recovered/Not Resolved]

NARRATIVE: CASE EVENT DATE: 20230401
